FAERS Safety Report 10044122 (Version 2)
Quarter: 2014Q1

REPORT INFORMATION
  Report Type: Spontaneous
  Country: US (occurrence: US)
  Receive Date: 20140328
  Receipt Date: 20140328
  Transmission Date: 20141002
  Serious: No
  Sender: FDA-Public Use
  Company Number: US-MYLANLABS-2013S1016912

PATIENT
  Age: 58 Year
  Sex: Male
  Weight: 117.94 kg

DRUGS (5)
  1. EMSAM (SELEGILINE TRANSDERMAL SYSTEM) [Suspect]
     Indication: DEPRESSION
     Dosage: QD
     Route: 062
     Dates: start: 20121210
  2. EMSAM (SELEGILINE TRANSDERMAL SYSTEM) [Suspect]
     Indication: DEPRESSION
     Route: 062
  3. EMSAM (SELEGILINE TRANSDERMAL SYSTEM) [Suspect]
     Indication: DEPRESSION
     Route: 062
     Dates: end: 20130412
  4. OMEPRAZOLE [Concomitant]
  5. ZOLPIDEM [Concomitant]
     Dates: start: 20130330

REACTIONS (6)
  - Hypersensitivity [Recovering/Resolving]
  - Application site irritation [Recovered/Resolved]
  - Application site exfoliation [Recovered/Resolved]
  - Application site discharge [Recovered/Resolved]
  - Application site erythema [Recovered/Resolved]
  - Application site discolouration [Recovered/Resolved with Sequelae]
